FAERS Safety Report 9699207 (Version 4)
Quarter: 2013Q4

REPORT INFORMATION
  Report Type: Report from Study
  Country: US (occurrence: US)
  Receive Date: 20131120
  Receipt Date: 20131223
  Transmission Date: 20140711
  Serious: Yes (Hospitalization, Other)
  Sender: FDA-Public Use
  Company Number: US-IPSEN BIOPHARMACEUTICALS, INC.-2010-1920

PATIENT
  Age: 37 Year
  Sex: Female
  Weight: 68 kg

DRUGS (7)
  1. SOMATULINE DEPOT INJECTION (90MG) [Suspect]
     Indication: ACROMEGALY
     Dosage: 90 MG
     Route: 058
     Dates: start: 200710
  2. SOMATULINE DEPOT INJECTION (90MG) [Suspect]
     Dosage: 120 MG
     Route: 058
     Dates: start: 200809, end: 20100528
  3. SOMATULINE DEPOT INJECTION (90MG) [Suspect]
     Dosage: 120 MG
     Route: 058
     Dates: start: 20100801
  4. SYNTHROID [Concomitant]
     Indication: PRODUCT USED FOR UNKNOWN INDICATION
     Route: 065
  5. CABERGOLINE [Concomitant]
     Indication: PRODUCT USED FOR UNKNOWN INDICATION
     Route: 065
  6. ZOLOFT [Concomitant]
     Indication: PRODUCT USED FOR UNKNOWN INDICATION
     Dosage: 50 OR 100 MG
     Route: 065
     Dates: start: 20101014
  7. ZOLOFT [Concomitant]
     Dosage: NOT REPORTED
     Route: 065
     Dates: start: 201308

REACTIONS (2)
  - Suicidal ideation [Recovered/Resolved]
  - Depression [Not Recovered/Not Resolved]
